FAERS Safety Report 10531696 (Version 2)
Quarter: 2014Q4

REPORT INFORMATION
  Report Type: Report from Study
  Country: BR (occurrence: BR)
  Receive Date: 20141021
  Receipt Date: 20141030
  Transmission Date: 20150529
  Serious: Yes (Death, Other)
  Sender: FDA-Public Use
  Company Number: PHHY2014BR136640

PATIENT
  Sex: Male
  Weight: 75 kg

DRUGS (4)
  1. LEXAPRO [Concomitant]
     Active Substance: ESCITALOPRAM OXALATE
     Indication: PRODUCT USED FOR UNKNOWN INDICATION
     Dosage: UNK UKN, UNK
     Route: 065
  2. EXELON PATCH [Suspect]
     Active Substance: RIVASTIGMINE
     Indication: PRODUCT USED FOR UNKNOWN INDICATION
     Dosage: 4.6 MG/24 HOURS (9 MG/5CM2)
     Route: 065
     Dates: start: 201409, end: 201409
  3. EBIX [Concomitant]
     Active Substance: MEMANTINE HYDROCHLORIDE
     Indication: PRODUCT USED FOR UNKNOWN INDICATION
     Dosage: UNK UKN, UNK
     Route: 065
     Dates: start: 201311
  4. EXELON PATCH [Suspect]
     Active Substance: RIVASTIGMINE
     Dosage: 0.5 DF, UNK
     Route: 062

REACTIONS (10)
  - Cerebrovascular accident [Unknown]
  - Cerebral disorder [Unknown]
  - Crying [Unknown]
  - Angiopathy [Unknown]
  - Diarrhoea [Recovered/Resolved]
  - Death [Fatal]
  - Arrhythmia [Unknown]
  - General physical health deterioration [Unknown]
  - Depression [Recovered/Resolved]
  - Wrong technique in drug usage process [Unknown]
